FAERS Safety Report 20963703 (Version 1)
Quarter: 2022Q2

REPORT INFORMATION
  Report Type: Report from Study
  Country: US (occurrence: US)
  Receive Date: 20220615
  Receipt Date: 20220615
  Transmission Date: 20220721
  Serious: Yes (Hospitalization)
  Sender: FDA-Public Use
  Company Number: US-BAYER-2022A070032

PATIENT
  Age: 66 Year
  Sex: Female
  Weight: 62.177 kg

DRUGS (4)
  1. ADEMPAS [Suspect]
     Active Substance: RIOCIGUAT
     Indication: Pulmonary arterial hypertension
     Dosage: UNK
     Dates: start: 20211111
  2. ADEMPAS [Suspect]
     Active Substance: RIOCIGUAT
     Indication: Pulmonary arterial hypertension
     Dosage: 2 MG, TID
     Route: 048
  3. REMODULIN [Concomitant]
     Active Substance: TREPROSTINIL
  4. AMLODIPINE [Concomitant]
     Active Substance: AMLODIPINE BESYLATE
     Dosage: UNK

REACTIONS (5)
  - Asthenia [None]
  - Cold sweat [None]
  - Dizziness [None]
  - Dehydration [None]
  - Blood sodium decreased [None]

NARRATIVE: CASE EVENT DATE: 20220510
